FAERS Safety Report 9849690 (Version 1)
Quarter: 2014Q1

REPORT INFORMATION
  Report Type: Spontaneous
  Country: US (occurrence: US)
  Receive Date: 20140128
  Receipt Date: 20140128
  Transmission Date: 20141002
  Serious: No
  Sender: FDA-Public Use
  Company Number: US-PFIZER INC-2014022015

PATIENT
  Age: 73 Year
  Sex: Female
  Weight: 91.16 kg

DRUGS (2)
  1. ADVIL PM [Suspect]
     Indication: SLEEP DISORDER
     Dosage: UNK, AS NEEDED
  2. ADVIL PM [Suspect]
     Indication: ARTHRALGIA

REACTIONS (2)
  - Snoring [Unknown]
  - Feeling abnormal [Unknown]
